FAERS Safety Report 8505584-X (Version None)
Quarter: 2012Q3

REPORT INFORMATION
  Report Type: 
  Country: None (occurrence: None)
  Receive Date: 20120712
  Receipt Date: 20120704
  Transmission Date: 20120928
  Serious: Yes (Other)
  Sender: FDA-Public Use
  Company Number: JP-SANOFI-AVENTIS-2012SA048413

PATIENT
  Age: 64 Year
  Sex: Male

DRUGS (3)
  1. FLUOROURACIL [Suspect]
     Dosage: EVENT: AFTER 3 RD CYCLE
     Route: 065
  2. DOCETAXEL [Suspect]
     Dosage: EVENT AFTER 3 RD CYCLE
     Route: 065
  3. CISPLATIN [Suspect]
     Dosage: EVENT: AFTER 3 RD CYCLE
     Route: 065

REACTIONS (7)
  - OESOPHAGEAL PERFORATION [None]
  - ALOPECIA [None]
  - VOMITING [None]
  - NAUSEA [None]
  - DYSGEUSIA [None]
  - PNEUMOMEDIASTINUM [None]
  - NEUTROPHIL COUNT DECREASED [None]
